FAERS Safety Report 7033068-7 (Version None)
Quarter: 2010Q4

REPORT INFORMATION
  Report Type: 
  Country: None (occurrence: None)
  Receive Date: 20101007
  Receipt Date: 20101001
  Transmission Date: 20110411
  Serious: Yes (Other)
  Sender: FDA-Public Use
  Company Number: DE-PFIZER INC-2010125073

PATIENT
  Age: 61 Year
  Sex: Female

DRUGS (3)
  1. CELEBREX [Suspect]
     Indication: POLYARTHRITIS
     Dosage: 200 MG, 1X/DAY
     Dates: start: 20060101, end: 20100801
  2. CELEBREX [Suspect]
     Indication: OSTEOARTHRITIS
  3. LIVIELLA [Concomitant]
     Dosage: UNK

REACTIONS (2)
  - DIARRHOEA HAEMORRHAGIC [None]
  - PROCTITIS ULCERATIVE [None]
